FAERS Safety Report 4740465-9 (Version None)
Quarter: 2005Q3

REPORT INFORMATION
  Report Type: 
  Country: None (occurrence: None)
  Receive Date: 20050810
  Receipt Date: 20050801
  Transmission Date: 20060218
  Serious: Yes (Other)
  Sender: FDA-Public Use
  Company Number: PHNU2005DE02723

PATIENT
  Sex: Male

DRUGS (2)
  1. RITALIN [Suspect]
     Route: 048
  2. AMFETAMINE [Suspect]
     Route: 065

REACTIONS (2)
  - BLOOD PRESSURE INCREASED [None]
  - HALLUCINATION [None]
